FAERS Safety Report 12943494 (Version 3)
Quarter: 2016Q4

REPORT INFORMATION
  Report Type: Spontaneous
  Country: US (occurrence: US)
  Receive Date: 20161115
  Receipt Date: 20161220
  Transmission Date: 20170207
  Serious: No
  Sender: FDA-Public Use
  Company Number: US-009507513-1611USA001493

PATIENT
  Sex: Female

DRUGS (1)
  1. FINASTERIDE. [Suspect]
     Active Substance: FINASTERIDE
     Dosage: UNK

REACTIONS (3)
  - Accidental exposure to product [Unknown]
  - Occupational exposure to product [Unknown]
  - No adverse event [Unknown]
